FAERS Safety Report 10230250 (Version 2)
Quarter: 2014Q2

REPORT INFORMATION
  Report Type: Spontaneous
  Country: US (occurrence: US)
  Receive Date: 20140611
  Receipt Date: 20140630
  Transmission Date: 20141212
  Serious: Yes (Hospitalization, Other)
  Sender: FDA-Public Use
  Company Number: US-BAXTER-2014BAX029106

PATIENT
  Age: 59 Year
  Sex: Male

DRUGS (2)
  1. DIANEAL LOW CALCIUM [Suspect]
     Indication: PERITONEAL DIALYSIS
     Route: 033
  2. DIANEAL LOW CALCIUM [Suspect]
     Indication: PERITONEAL DIALYSIS
     Route: 033

REACTIONS (7)
  - Hydrocele [Recovering/Resolving]
  - Scrotal swelling [Recovering/Resolving]
  - Peritoneal perforation [Recovering/Resolving]
  - Hernia [Recovering/Resolving]
  - Peritoneal disorder [Unknown]
  - Peritonitis [Recovered/Resolved]
  - Peritoneal dialysis complication [Unknown]
